FAERS Safety Report 9433902 (Version 1)
Quarter: 2013Q3

REPORT INFORMATION
  Report Type: Spontaneous
  Country: DE (occurrence: DE)
  Receive Date: 20130801
  Receipt Date: 20130801
  Transmission Date: 20140515
  Serious: Yes (Other)
  Sender: FDA-Public Use
  Company Number: GXKR2013DE002527

PATIENT
  Sex: Male
  Weight: 3.13 kg

DRUGS (1)
  1. SERTRALINE [Suspect]
     Dosage: MATERNAL DOSE: 25MG/DAY FROM 12JUN2008; 50MG/DAY FROM 26JUN2008

REACTIONS (3)
  - Frequent bowel movements [Unknown]
  - Restlessness [Recovered/Resolved]
  - Exposure during breast feeding [Unknown]
